FAERS Safety Report 4970708-8 (Version None)
Quarter: 2006Q2

REPORT INFORMATION
  Report Type: 
  Country: None (occurrence: None)
  Receive Date: 20060412
  Receipt Date: 20051031
  Transmission Date: 20061013
  Serious: Yes (Hospitalization, Other)
  Sender: FDA-Public Use
  Company Number: US-MERCK-0511USA00098

PATIENT
  Age: 72 Year
  Sex: Female
  Weight: 68 kg

DRUGS (18)
  1. VIOXX [Suspect]
     Indication: BURSITIS
     Route: 048
     Dates: start: 20000314, end: 20040813
  2. VIOXX [Suspect]
     Indication: ARTHRITIS
     Route: 048
     Dates: start: 20000314, end: 20040813
  3. ALPRAZOLAM [Concomitant]
     Indication: INSOMNIA
     Route: 065
     Dates: start: 20020101
  4. CEFADROXIL [Concomitant]
     Route: 065
  5. DOXYCYCLINE HYCLATE [Concomitant]
     Route: 065
  6. ACETAMINOPHEN AND PROPOXYPHENE NAPSYLATE [Concomitant]
     Indication: PAIN
     Route: 065
  7. QUININE SULFATE [Concomitant]
     Indication: MUSCLE SPASMS
     Route: 065
  8. ZYRTEC [Concomitant]
     Indication: HYPERSENSITIVITY
     Route: 065
  9. ASPIRIN [Concomitant]
     Route: 065
  10. ADVIL [Concomitant]
     Indication: PAIN
     Route: 065
  11. TYLENOL (CAPLET) [Concomitant]
     Indication: PAIN
     Route: 065
  12. ACETAMINOPHEN AND HYDROCODONE BITARTRATE [Concomitant]
     Indication: PAIN
     Route: 065
  13. TIMOPTIC [Concomitant]
     Indication: EYE DISORDER
     Route: 065
     Dates: start: 20001127, end: 20031021
  14. MOTRIN [Concomitant]
     Indication: PAIN
     Route: 065
  15. ALEVE [Concomitant]
     Indication: PAIN
     Route: 065
  16. PREMARIN [Concomitant]
     Indication: MENOPAUSE
     Route: 065
     Dates: end: 20000616
  17. XANAX [Concomitant]
     Indication: INSOMNIA
     Route: 065
     Dates: start: 20020131
  18. LITHIUM CARBONATE [Concomitant]
     Route: 065

REACTIONS (31)
  - AMNESIA [None]
  - BLINDNESS [None]
  - BRADYCARDIA [None]
  - CATARACT [None]
  - CEREBROVASCULAR ACCIDENT [None]
  - CHEST PAIN [None]
  - COLON ADENOMA [None]
  - CORONARY ARTERY DISEASE [None]
  - DIVERTICULUM [None]
  - DIZZINESS [None]
  - DYSPEPSIA [None]
  - FAECES DISCOLOURED [None]
  - FATIGUE [None]
  - GASTROINTESTINAL HAEMORRHAGE [None]
  - GASTROINTESTINAL TRACT ADENOMA [None]
  - GASTROOESOPHAGEAL REFLUX DISEASE [None]
  - GLAUCOMA [None]
  - HIATUS HERNIA [None]
  - HYPERLIPIDAEMIA [None]
  - HYPOTENSION [None]
  - LOSS OF CONSCIOUSNESS [None]
  - MOBILITY DECREASED [None]
  - NAUSEA [None]
  - OSTEOARTHRITIS [None]
  - PERIPHERAL VASCULAR DISORDER [None]
  - RHEUMATOID ARTHRITIS [None]
  - SKIN CANCER [None]
  - SLEEP DISORDER [None]
  - SUBCUTANEOUS NODULE [None]
  - SYNCOPE [None]
  - ULCER [None]
